FAERS Safety Report 7235041-2 (Version None)
Quarter: 2011Q1

REPORT INFORMATION
  Report Type: 
  Country: None (occurrence: None)
  Receive Date: 20110111
  Receipt Date: 20101228
  Transmission Date: 20110831
  Serious: Yes (Death)
  Sender: FDA-Public Use
  Company Number: 011981

PATIENT
  Age: 62 Year
  Sex: Female

DRUGS (6)
  1. OPONAF (LACTITOL) [Concomitant]
  2. NORFLOXACIN [Concomitant]
  3. SAMSCA [Suspect]
     Indication: HYPONATRAEMIA
     Dosage: ,  ORAL
     Route: 048
     Dates: start: 20100816, end: 20101022
  4. OMEPRAZOLE [Concomitant]
  5. RESINCALCIO (CALCIUM POLYSTYRENE SULFONATE) [Concomitant]
  6. RIFAXIMIN (RIFAXIMIN) [Concomitant]

REACTIONS (3)
  - CONDITION AGGRAVATED [None]
  - DRUG INEFFECTIVE [None]
  - METABOLIC ENCEPHALOPATHY [None]
